FAERS Safety Report 8908792 (Version 1)
Quarter: 2012Q4

REPORT INFORMATION
  Report Type: 
  Country: US (occurrence: US)
  Receive Date: 20121114
  Receipt Date: 20121114
  Transmission Date: 20130627
  Serious: No
  Sender: FDA-Public Use
  Company Number: US-ASTRAZENECA-2012SE79411

PATIENT
  Age: 84 Year
  Sex: Female
  Weight: 77.1 kg

DRUGS (4)
  1. OMEPRAZOLE [Suspect]
     Indication: GASTROOESOPHAGEAL REFLUX DISEASE
     Route: 048
  2. LOWERING CHOLESTEROL COUPLE [Concomitant]
     Indication: BLOOD CHOLESTEROL INCREASED
  3. HEART DISEASE MEDICATIONS [Concomitant]
     Indication: CARDIAC DISORDER
  4. OSTEOPOROSIS MEDICATION [Concomitant]
     Indication: OSTEOPOROSIS

REACTIONS (1)
  - Osteoporosis [Unknown]
